FAERS Safety Report 7199646-X (Version None)
Quarter: 2010Q4

REPORT INFORMATION
  Report Type: 
  Country: None (occurrence: None)
  Receive Date: 20101228
  Receipt Date: 20101222
  Transmission Date: 20110411
  Serious: Yes (Other)
  Sender: FDA-Public Use
  Company Number: JP-PFIZER INC-2010172165

PATIENT
  Age: 70 Year
  Sex: Female

DRUGS (5)
  1. SOLU-MEDROL [Suspect]
     Dosage: 40 MG, UNK
     Route: 042
  2. PREDNISOLONE [Suspect]
     Indication: COLITIS ULCERATIVE
     Dosage: 15 MG, 1X/DAY
     Route: 048
  3. SALICYLAZOSULFAPYRIDINE [Concomitant]
     Indication: COLITIS ULCERATIVE
     Dosage: 4500 MG, 1X/DAY
     Route: 048
  4. GASTER [Concomitant]
     Dosage: UNK
  5. MESALAZINE [Concomitant]
     Dosage: UNK

REACTIONS (1)
  - HEPATITIS B [None]
